FAERS Safety Report 9120175 (Version 3)
Quarter: 2013Q1

REPORT INFORMATION
  Report Type: Spontaneous
  Country: US (occurrence: US)
  Receive Date: 20130226
  Receipt Date: 20130325
  Transmission Date: 20140127
  Serious: Yes (Hospitalization)
  Sender: FDA-Public Use
  Company Number: US-JNJFOC-20130212898

PATIENT
  Age: 56 Year
  Sex: Male
  Weight: 147.19 kg

DRUGS (12)
  1. XARELTO [Suspect]
     Indication: CEREBROVASCULAR ACCIDENT PROPHYLAXIS
     Route: 048
  2. XARELTO [Suspect]
     Indication: CEREBROVASCULAR ACCIDENT PROPHYLAXIS
     Route: 048
     Dates: start: 201212, end: 20130203
  3. XARELTO [Suspect]
     Indication: ATRIAL FIBRILLATION
     Route: 048
  4. XARELTO [Suspect]
     Indication: ATRIAL FIBRILLATION
     Route: 048
     Dates: start: 201212, end: 20130203
  5. TRAVATAN [Concomitant]
     Dosage: 0.004% OP SOLUTION 1 DROP EVERY DAY AFTERNOON (QPM)
     Route: 065
  6. ATIVAN [Concomitant]
     Dosage: EVERY 6 HOURS AS NEEDED
     Route: 048
  7. LANOXIN [Concomitant]
     Dosage: TAKE BY MOUTH
     Route: 048
  8. LOPRESSOR [Concomitant]
     Dosage: TAKE BY MOUTH
     Route: 048
  9. LOTREL [Concomitant]
     Dosage: TAKE 5-20 MG BY MOUTH
     Route: 048
  10. ANTIVERT [Concomitant]
     Dosage: AS NEEDED
     Route: 048
  11. RESTORIL [Concomitant]
     Route: 048
  12. LASIX [Concomitant]
     Route: 048

REACTIONS (7)
  - Cerebral haemorrhage [Recovered/Resolved]
  - Cardiomyopathy [Unknown]
  - Subarachnoid haemorrhage [Recovered/Resolved]
  - Cerebellar infarction [Recovered/Resolved]
  - Brain stem infarction [Recovered/Resolved]
  - Arteriovenous fistula site haemorrhage [Recovered/Resolved]
  - Sleep apnoea syndrome [Unknown]
